FAERS Safety Report 6766079-7 (Version None)
Quarter: 2010Q2

REPORT INFORMATION
  Report Type: 
  Country: None (occurrence: None)
  Receive Date: 20100611
  Receipt Date: 20100608
  Transmission Date: 20101027
  Serious: Yes (Other)
  Sender: FDA-Public Use
  Company Number: D0066961A

PATIENT
  Sex: Female
  Weight: 130 kg

DRUGS (3)
  1. AVANDIA [Suspect]
     Indication: DIABETES MELLITUS
     Dosage: 4MG TWICE PER DAY
     Route: 048
     Dates: start: 20070701, end: 20091101
  2. LEVOTHYROXINE SODIUM [Concomitant]
     Indication: HYPOTHYROIDISM
     Route: 065
  3. CONCOR [Concomitant]
     Route: 065

REACTIONS (8)
  - ANGINA PECTORIS [None]
  - DYSPNOEA [None]
  - FLUID RETENTION [None]
  - INSOMNIA [None]
  - JOINT STIFFNESS [None]
  - OEDEMA [None]
  - TACHYCARDIA [None]
  - WEIGHT INCREASED [None]
